FAERS Safety Report 8217970-6 (Version None)
Quarter: 2012Q1

REPORT INFORMATION
  Report Type: 
  Country: None (occurrence: None)
  Receive Date: 20120319
  Receipt Date: 20120314
  Transmission Date: 20120608
  Serious: Yes (Other)
  Sender: FDA-Public Use
  Company Number: BR-PFIZER INC-2012068355

PATIENT
  Age: 59 Year
  Sex: Female

DRUGS (3)
  1. VARENICLINE TARTRATE [Suspect]
     Indication: TOBACCO USER
     Dosage: UNK
     Route: 048
     Dates: start: 20120123, end: 20120101
  2. VARENICLINE TARTRATE [Suspect]
     Dosage: 1 MG, 2X/DAY
     Route: 048
     Dates: start: 20120101
  3. ASPIRIN [Concomitant]
     Indication: BLOOD DISORDER
     Dosage: UNK

REACTIONS (7)
  - TONGUE COATED [None]
  - THROAT IRRITATION [None]
  - INCREASED UPPER AIRWAY SECRETION [None]
  - CHEST DISCOMFORT [None]
  - DYSPNOEA [None]
  - THROAT TIGHTNESS [None]
  - SENSATION OF FOREIGN BODY [None]
